FAERS Safety Report 11782635 (Version 1)
Quarter: 2015Q4

REPORT INFORMATION
  Report Type: Spontaneous
  Country: US (occurrence: US)
  Receive Date: 20151127
  Receipt Date: 20151127
  Transmission Date: 20160305
  Serious: Yes (Other)
  Sender: FDA-Public Use
  Company Number: US-AMGEN-USASP2015123810

PATIENT
  Age: 43 Year
  Sex: Female
  Weight: 117.3 kg

DRUGS (3)
  1. EPOGEN [Suspect]
     Active Substance: ERYTHROPOIETIN
     Dosage: 10000 UNIT, 3 TIMES/WK
     Route: 058
     Dates: start: 20151102, end: 20151118
  2. EPOGEN [Suspect]
     Active Substance: ERYTHROPOIETIN
     Indication: NEPHROGENIC ANAEMIA
     Dosage: 10000 UNIT, 3 TIMES/WK
     Route: 058
     Dates: start: 20110511
  3. EPOGEN [Suspect]
     Active Substance: ERYTHROPOIETIN
     Dosage: 7000 UNIT, 3 TIMES/WK
     Route: 058
     Dates: start: 20150811

REACTIONS (3)
  - Aplasia pure red cell [Not Recovered/Not Resolved]
  - Haemoglobin decreased [Unknown]
  - Haematocrit decreased [Unknown]

NARRATIVE: CASE EVENT DATE: 20151028
